FAERS Safety Report 5677325-5 (Version None)
Quarter: 2008Q1

REPORT INFORMATION
  Report Type: 
  Country: None (occurrence: None)
  Receive Date: 20080324
  Receipt Date: 20080313
  Transmission Date: 20080703
  Serious: Yes (Hospitalization)
  Sender: FDA-Public Use
  Company Number: JP-MERCK-0803USA03132

PATIENT
  Age: 67 Year
  Sex: Male
  Weight: 56 kg

DRUGS (6)
  1. ZOCOR [Suspect]
     Indication: HYPERLIPIDAEMIA
     Route: 048
     Dates: start: 20070101
  2. LOXONIN [Suspect]
     Route: 048
  3. DEPAS [Suspect]
     Route: 048
  4. GASTER D [Suspect]
     Indication: GASTRIC ULCER
     Route: 048
     Dates: start: 20071227
  5. PARIET [Suspect]
     Indication: GASTRIC ULCER
     Route: 048
     Dates: start: 20080104
  6. GASMOTIN [Suspect]
     Indication: GASTRIC ULCER
     Route: 048
     Dates: start: 20071210

REACTIONS (4)
  - FEBRILE NEUTROPENIA [None]
  - INTERSTITIAL LUNG DISEASE [None]
  - SYSTEMIC INFLAMMATORY RESPONSE SYNDROME [None]
  - TREMOR [None]
